FAERS Safety Report 24737896 (Version 1)
Quarter: 2024Q4

REPORT INFORMATION
  Report Type: Spontaneous
  Country: US (occurrence: US)
  Receive Date: 20241216
  Receipt Date: 20241216
  Transmission Date: 20250115
  Serious: Yes (Hospitalization, Other)
  Sender: GENEYORK PHARMACEUTICALS GROUP LLC
  Company Number: US-GENEYORK-2024PPLIT00070

PATIENT
  Age: 30 Year
  Sex: Male

DRUGS (7)
  1. PREDNISONE [Suspect]
     Active Substance: PREDNISONE
     Indication: Nephrotic syndrome
     Route: 065
  2. PREDNISONE [Suspect]
     Active Substance: PREDNISONE
     Indication: Immunosuppressant drug therapy
     Dosage: FOR ADDITIONAL 4 MONTHS
     Route: 065
  3. RITUXIMAB [Concomitant]
     Active Substance: RITUXIMAB
     Indication: Focal segmental glomerulosclerosis
     Dosage: 1G X2 FOLLOWED BY 1G AT 6 MONTHS
     Route: 065
  4. OBINUTUZUMAB [Concomitant]
     Active Substance: OBINUTUZUMAB
     Indication: Focal segmental glomerulosclerosis
     Dosage: 1G X2 FOLLOWED BY 1G AT 6 MONTHS
     Route: 065
  5. TACROLIMUS [Concomitant]
     Active Substance: TACROLIMUS
     Indication: Focal segmental glomerulosclerosis
     Dosage: ROUGH: 5-7 MG/L
     Route: 065
  6. DAPAGLIFLOZIN [Concomitant]
     Active Substance: DAPAGLIFLOZIN
     Indication: Focal segmental glomerulosclerosis
     Route: 065
  7. DARATUMUMAB [Concomitant]
     Active Substance: DARATUMUMAB
     Indication: Focal segmental glomerulosclerosis
     Dosage: FOR 8 DOSES
     Route: 058

REACTIONS (1)
  - Retinal detachment [Unknown]
